FAERS Safety Report 18532677 (Version 2)
Quarter: 2020Q4

REPORT INFORMATION
  Report Type: Report from Study
  Country: ES (occurrence: ES)
  Receive Date: 20201123
  Receipt Date: 20201130
  Transmission Date: 20210114
  Serious: Yes (Life-Threatening)
  Sender: FDA-Public Use
  Company Number: ES-BIOVITRUM-2020ES6485

PATIENT
  Age: 67 Year
  Sex: Male
  Weight: 75 kg

DRUGS (16)
  1. ANAKINRA [Suspect]
     Active Substance: ANAKINRA
     Indication: COVID-19
     Route: 042
     Dates: start: 20201110, end: 20201115
  2. MORPHINE [Concomitant]
     Active Substance: MORPHINE
     Indication: SEDATION
     Route: 042
     Dates: start: 20201110, end: 20201122
  3. PARACETAMOL [Concomitant]
     Active Substance: ACETAMINOPHEN
     Indication: COVID-19
     Route: 042
     Dates: start: 20201109
  4. FENTANYL. [Concomitant]
     Active Substance: FENTANYL
     Indication: SEDATION
     Route: 042
     Dates: start: 20201116, end: 20201116
  5. MIDAZOLE [Concomitant]
     Indication: SEDATION
     Route: 042
     Dates: start: 20201110, end: 20201122
  6. LINEZOLID. [Concomitant]
     Active Substance: LINEZOLID
     Indication: INFECTION
     Route: 042
     Dates: start: 20201115
  7. DEXAMETASONE [Concomitant]
     Active Substance: DEXAMETHASONE
     Indication: COVID-19
     Route: 042
     Dates: start: 20201109, end: 20201117
  8. VANCOMYCIN [Concomitant]
     Active Substance: VANCOMYCIN
     Indication: INFECTION
  9. MEROPENEM. [Concomitant]
     Active Substance: MEROPENEM
     Indication: INFECTION
     Route: 042
     Dates: start: 20201115, end: 20201122
  10. OMEPRAZOLE. [Concomitant]
     Active Substance: OMEPRAZOLE
     Indication: PROPHYLAXIS AGAINST GASTROINTESTINAL ULCER
     Route: 042
     Dates: start: 20200209, end: 20201122
  11. ERITROMICIN [Concomitant]
     Active Substance: ERYTHROMYCIN
     Indication: INFECTION
     Route: 042
     Dates: start: 20201117, end: 20201122
  12. METRONIDAZOLE. [Concomitant]
     Active Substance: METRONIDAZOLE
     Indication: INFECTION
     Route: 042
     Dates: start: 20201120, end: 20201122
  13. PROPOFOL. [Concomitant]
     Active Substance: PROPOFOL
     Indication: SEDATION
     Route: 042
     Dates: start: 20201120, end: 20201122
  14. ENOXAPARINE [Concomitant]
     Active Substance: ENOXAPARIN
     Indication: THROMBOSIS PROPHYLAXIS
     Route: 058
     Dates: start: 20201109, end: 20201122
  15. LORAZEPAM. [Concomitant]
     Active Substance: LORAZEPAM
     Indication: ANXIETY
     Route: 048
     Dates: start: 20201113, end: 20201116
  16. HIDROCORTISONE [Concomitant]
     Active Substance: HYDROCORTISONE
     Indication: COVID-19
     Route: 042
     Dates: start: 20201119, end: 20201122

REACTIONS (1)
  - Pneumothorax [Not Recovered/Not Resolved]

NARRATIVE: CASE EVENT DATE: 20201116
